FAERS Safety Report 21135772 (Version 2)
Quarter: 2022Q3

REPORT INFORMATION
  Report Type: Spontaneous
  Country: JP (occurrence: JP)
  Receive Date: 20220727
  Receipt Date: 20220822
  Transmission Date: 20221026
  Serious: Yes (Other)
  Sender: FDA-Public Use
  Company Number: JP-MLMSERVICE-20220713-3671126-1

PATIENT
  Age: 78 Year
  Sex: Male
  Weight: 48 kg

DRUGS (7)
  1. ACYCLOVIR [Suspect]
     Active Substance: ACYCLOVIR
     Indication: Varicella meningitis
     Dosage: 5.2 MG/KG/SESSION
     Route: 041
  2. ACYCLOVIR [Suspect]
     Active Substance: ACYCLOVIR
     Route: 041
  3. VALACYCLOVIR HYDROCHLORIDE [Suspect]
     Active Substance: VALACYCLOVIR HYDROCHLORIDE
     Indication: Herpes zoster
     Dosage: 2000 MG IN TOTAL
     Route: 048
  4. CILOSTAZOL [Concomitant]
     Active Substance: CILOSTAZOL
     Indication: Product used for unknown indication
  5. ESOMEPRAZOLE MAGNESIUM [Concomitant]
     Active Substance: ESOMEPRAZOLE MAGNESIUM
     Indication: Product used for unknown indication
  6. AMLODIPINE BESILATE;IRBESARTAN [Concomitant]
     Indication: Product used for unknown indication
  7. LANTHANUM CARBONATE [Concomitant]
     Active Substance: LANTHANUM CARBONATE
     Indication: Product used for unknown indication

REACTIONS (2)
  - Toxic encephalopathy [Recovered/Resolved]
  - Overdose [Unknown]
